FAERS Safety Report 4297050-5 (Version None)
Quarter: 2004Q1

REPORT INFORMATION
  Report Type: 
  Country: None (occurrence: None)
  Receive Date: 20040126
  Receipt Date: 20030915
  Transmission Date: 20041129
  Serious: No
  Sender: FDA-Public Use
  Company Number: USA030947270

PATIENT
  Sex: Female

DRUGS (1)
  1. STRATTERA [Suspect]
     Dosage: 40 MG/DAY
     Dates: start: 20030909, end: 20030914

REACTIONS (4)
  - ABDOMINAL PAIN UPPER [None]
  - ANXIETY [None]
  - CRYING [None]
  - DEPRESSION [None]
